FAERS Safety Report 21399704 (Version 1)
Quarter: 2022Q4

REPORT INFORMATION
  Report Type: Spontaneous
  Country: DE (occurrence: DE)
  Receive Date: 20221001
  Receipt Date: 20221001
  Transmission Date: 20230113
  Serious: Yes (Hospitalization)
  Sender: FDA-Public Use
  Company Number: DE-ADRED-07733-01

PATIENT
  Age: 79 Year
  Sex: Female

DRUGS (1)
  1. MIRTAZAPINE [Suspect]
     Active Substance: MIRTAZAPINE
     Indication: Product used for unknown indication
     Dosage: 1 DOSAGE FORMS DAILY; 15 MG, 0-0-1-0, UNIT DOSE : 1 DF , FREQUENCY : OD

REACTIONS (3)
  - Arrhythmia [Unknown]
  - Dizziness [Unknown]
  - Palpitations [Unknown]
